FAERS Safety Report 9294236 (Version 2)
Quarter: 2013Q2

REPORT INFORMATION
  Report Type: Spontaneous
  Country: US (occurrence: None)
  Receive Date: 20130515
  Receipt Date: 20130515
  Transmission Date: 20140414
  Serious: Yes (Other)
  Sender: FDA-Public Use
  Company Number: JPI-P-031480

PATIENT
  Age: 56 Year
  Sex: Female
  Weight: 63.05 kg

DRUGS (22)
  1. XYREM [Suspect]
     Indication: CATAPLEXY
     Dosage: 4.5 GM (2.25 GM. 2 IN 1 D )
     Route: 048
     Dates: start: 20121105, end: 2012
  2. ABATACEPT [Suspect]
     Dosage: (UNKNOWN)
     Dates: start: 20130422
  3. INFLIXIMAB (REMICADE) [Concomitant]
  4. METHOTREXATE [Concomitant]
  5. DEXTROAMPHETAMINE [Concomitant]
  6. POTASSIUM CHLORIDE [Concomitant]
  7. ZOLEDRONIC ACID (RECLAST) [Concomitant]
  8. HYDROXYCHLOROQUINE [Concomitant]
  9. FOLIC ACID [Concomitant]
  10. PREDNISONE [Concomitant]
  11. TRAMADOL HCL [Concomitant]
  12. ACETAMINOPHEN (TABLETS) [Concomitant]
  13. CALCIUM [Concomitant]
  14. VITAMIN D3 [Concomitant]
  15. TRIAMTERENE/HCTZ [Concomitant]
  16. CLONIDINE HCL [Concomitant]
  17. PRAVASTATIN [Concomitant]
  18. LORATADINE [Concomitant]
  19. FLUTICASONE PROPIONATE [Concomitant]
  20. ALBUTEROL HFA [Concomitant]
  21. ALBUTEROL INHALATION SOLUTION [Concomitant]
  22. DI-PHENYLALANINE [Concomitant]

REACTIONS (5)
  - Body temperature increased [None]
  - Fatigue [None]
  - Nausea [None]
  - Diarrhoea [None]
  - Gastrooesophageal reflux disease [None]
